FAERS Safety Report 10621636 (Version 1)
Quarter: 2014Q4

REPORT INFORMATION
  Report Type: Spontaneous
  Country: US (occurrence: None)
  Receive Date: 20141201
  Receipt Date: 20141201
  Transmission Date: 20150529
  Serious: Yes (Other)
  Sender: FDA-Public Use
  Company Number: None

PATIENT
  Age: 58 Year
  Sex: Male
  Weight: 111.13 kg

DRUGS (1)
  1. AVELOX [Suspect]
     Active Substance: MOXIFLOXACIN HYDROCHLORIDE
     Indication: SINUSITIS
     Dosage: 1
     Route: 048
     Dates: start: 20130415, end: 20130419

REACTIONS (6)
  - Feeling abnormal [None]
  - Diarrhoea [None]
  - Depressed mood [None]
  - Psychotic disorder [None]
  - Suicidal behaviour [None]
  - Confusional state [None]

NARRATIVE: CASE EVENT DATE: 20130418
